FAERS Safety Report 20917596 (Version 2)
Quarter: 2022Q3

REPORT INFORMATION
  Report Type: Spontaneous
  Country: JP (occurrence: JP)
  Receive Date: 20220606
  Receipt Date: 20220707
  Transmission Date: 20221026
  Serious: Yes (Other)
  Sender: FDA-Public Use
  Company Number: JP-GEHPL-2022JSU003801AA

PATIENT
  Age: 59 Year
  Sex: Female
  Weight: 45 kg

DRUGS (6)
  1. OMNIPAQUE [Suspect]
     Active Substance: IOHEXOL
     Indication: Scan with contrast
     Dosage: 96 ML, SINGLE
     Route: 042
     Dates: start: 20220528, end: 20220528
  2. OMNIPAQUE [Suspect]
     Active Substance: IOHEXOL
     Indication: Colon cancer
  3. SODIUM CHLORIDE [Concomitant]
     Active Substance: SODIUM CHLORIDE
     Indication: Scan with contrast
     Dosage: 100 ML
     Dates: start: 20220528, end: 20220528
  4. CAPECITABINE [Concomitant]
     Active Substance: CAPECITABINE
  5. PYRIDOXAL PHOSPHATE [Concomitant]
     Active Substance: PYRIDOXAL PHOSPHATE
  6. UREA [Concomitant]
     Active Substance: UREA

REACTIONS (3)
  - Nasal obstruction [Recovered/Resolved]
  - Pruritus [Recovered/Resolved]
  - Erythema [Recovered/Resolved]

NARRATIVE: CASE EVENT DATE: 20220528
